FAERS Safety Report 12140916 (Version 1)
Quarter: 2016Q1

REPORT INFORMATION
  Report Type: Spontaneous
  Country: US (occurrence: None)
  Receive Date: 20160302
  Receipt Date: 20160302
  Transmission Date: 20160526
  Serious: No
  Sender: FDA-Public Use
  Company Number: None

PATIENT
  Age: 67 Year
  Sex: Male

DRUGS (1)
  1. ESOMEPRAZOL MAG DR 40MG MYLAN [Suspect]
     Active Substance: ESOMEPRAZOLE
     Indication: LIVER TRANSPLANT
     Dosage: 1 CAP AT 8AM AND 8PM BID ORAL
     Route: 048
     Dates: start: 20160106

REACTIONS (2)
  - Nausea [None]
  - Abdominal pain upper [None]
